FAERS Safety Report 9495687 (Version 1)
Quarter: 2013Q3

REPORT INFORMATION
  Report Type: Spontaneous
  Country: DE (occurrence: DE)
  Receive Date: 20130903
  Receipt Date: 20130903
  Transmission Date: 20140515
  Serious: Yes (Other)
  Sender: FDA-Public Use
  Company Number: DE-B.I. PHARMACEUTICALS,INC./RIDGEFIELD-2013-BI-27009BY

PATIENT
  Sex: Female

DRUGS (1)
  1. TELMISARTAN [Suspect]
     Dosage: 320 MG
     Route: 065

REACTIONS (2)
  - Overdose [Unknown]
  - Pruritus [Unknown]
